FAERS Safety Report 4947049-8 (Version None)
Quarter: 2006Q1

REPORT INFORMATION
  Report Type: 
  Country: None (occurrence: None)
  Receive Date: 20060314
  Receipt Date: 20060301
  Transmission Date: 20060701
  Serious: Yes (Death)
  Sender: FDA-Public Use
  Company Number: USA-2006-0023503

PATIENT
  Age: 52 Year
  Sex: Male
  Weight: 49.3514 kg

DRUGS (10)
  1. OXYCONTIN [Suspect]
     Indication: BACK PAIN
     Dosage: 40 MG, Q12H, ORAL
     Route: 048
  2. ZOCOR [Concomitant]
  3. METOPROLOL (METOPROLOL) [Concomitant]
  4. LASIX [Concomitant]
  5. POTASSIUM CHLORIDE [Concomitant]
  6. AMBIEN [Concomitant]
  7. LEXAPRO [Concomitant]
  8. KLONOPIN [Concomitant]
  9. NEURONTIN [Concomitant]
  10. NORVASC [Concomitant]

REACTIONS (1)
  - CHRONIC OBSTRUCTIVE PULMONARY DISEASE [None]
